FAERS Safety Report 12199695 (Version 2)
Quarter: 2016Q2

REPORT INFORMATION
  Report Type: Spontaneous
  Country: JP (occurrence: JP)
  Receive Date: 20160322
  Receipt Date: 20160401
  Transmission Date: 20160815
  Serious: Yes (Death, Other)
  Sender: FDA-Public Use
  Company Number: JP-PFIZER INC-2016163153

PATIENT
  Age: 74 Year
  Sex: Male

DRUGS (2)
  1. VFEND [Suspect]
     Active Substance: VORICONAZOLE
     Dosage: 400 MG, DAILY
     Route: 048
     Dates: start: 20160303, end: 20160315
  2. VFEND [Suspect]
     Active Substance: VORICONAZOLE
     Dosage: 200 MG, DAILY
     Route: 048
     Dates: start: 20160316

REACTIONS (1)
  - Hepatic cirrhosis [Fatal]

NARRATIVE: CASE EVENT DATE: 20160316
